FAERS Safety Report 10451167 (Version 1)
Quarter: 2014Q3

REPORT INFORMATION
  Report Type: Spontaneous
  Country: US (occurrence: US)
  Receive Date: 20140912
  Receipt Date: 20140912
  Transmission Date: 20150326
  Serious: No
  Sender: FDA-Public Use
  Company Number: US-GALDERMA-US14003023

PATIENT
  Age: 45 Year
  Sex: Female

DRUGS (1)
  1. MIRVASO [Suspect]
     Active Substance: BRIMONIDINE TARTRATE
     Indication: ROSACEA
     Dosage: 0.33%
     Route: 061
     Dates: start: 201403, end: 201403

REACTIONS (5)
  - Drug ineffective [Recovered/Resolved]
  - Rebound effect [Recovered/Resolved]
  - Inappropriate schedule of drug administration [Recovered/Resolved]
  - Condition aggravated [Recovered/Resolved]
  - Drug effect decreased [Recovered/Resolved]

NARRATIVE: CASE EVENT DATE: 201403
